FAERS Safety Report 18948073 (Version 1)
Quarter: 2021Q1

REPORT INFORMATION
  Report Type: Spontaneous
  Country: US (occurrence: US)
  Receive Date: 20210226
  Receipt Date: 20210226
  Transmission Date: 20210420
  Serious: No
  Sender: FDA-Public Use
  Company Number: US-FRESENIUS KABI-FK202101847

PATIENT
  Age: 34 Year
  Sex: Female
  Weight: 62.9 kg

DRUGS (6)
  1. DIPRIVAN [Suspect]
     Active Substance: PROPOFOL
     Dosage: 100 MCG/KG/MIN: 37.74 ML/HR AT 0806
     Dates: start: 20210223, end: 20210223
  2. DIPRIVAN [Suspect]
     Active Substance: PROPOFOL
     Dosage: 100 MCG/KG/MIN: 37.74 ML/HR AT 0744
     Dates: start: 20210223, end: 20210223
  3. DIPRIVAN [Suspect]
     Active Substance: PROPOFOL
     Dosage: 140 MCG/KG/MIN: 52.836 ML/HR AT 0747
     Dates: start: 20210223, end: 20210223
  4. DIPRIVAN [Suspect]
     Active Substance: PROPOFOL
     Dosage: 160 MCG/KG/MIN: 60.384 ML/HR AT 0749
     Dates: start: 20210223, end: 20210223
  5. DIPRIVAN [Suspect]
     Active Substance: PROPOFOL
     Dosage: STOPPED: 0 MCG/KG/MIN: 0 ML/HR AT 0814
     Dates: start: 20210223, end: 20210223
  6. DIPRIVAN [Suspect]
     Active Substance: PROPOFOL
     Indication: SEDATIVE THERAPY
     Dosage: 75 MCG/KG/MIN: 28.305 ML/HR AT 0739
     Dates: start: 20210223, end: 20210223

REACTIONS (1)
  - Dyskinesia [Recovered/Resolved]

NARRATIVE: CASE EVENT DATE: 20210223
